FAERS Safety Report 18556491 (Version 1)
Quarter: 2020Q4

REPORT INFORMATION
  Report Type: Spontaneous
  Country: US (occurrence: US)
  Receive Date: 20201128
  Receipt Date: 20201128
  Transmission Date: 20210114
  Serious: Yes (Other)
  Sender: FDA-Public Use
  Company Number: US-009507513-2011USA015301

PATIENT
  Sex: Female
  Weight: 59 kg

DRUGS (10)
  1. PRINIVIL [Suspect]
     Active Substance: LISINOPRIL
     Dosage: 5 MILLIGRAM, QD
     Route: 048
  2. VITAMINS (UNSPECIFIED) [Concomitant]
     Active Substance: VITAMINS
     Dosage: 1 DOSAGE FORM, QD
  3. PERCOCET [Concomitant]
     Active Substance: ACETAMINOPHEN\OXYCODONE HYDROCHLORIDE
     Indication: PAIN
     Dosage: 10-325 MG FOUR TIMES DAILY
     Route: 048
  4. REMERON [Concomitant]
     Active Substance: MIRTAZAPINE
     Dosage: 15 MILLIGRAM, QD
     Route: 048
  5. FISH OIL [Concomitant]
     Active Substance: FISH OIL
     Dosage: 1000 MG, QD
     Route: 048
  6. NEXIUM [Suspect]
     Active Substance: ESOMEPRAZOLE MAGNESIUM
     Dosage: 40 MILLIGRAM, QD
     Route: 048
  7. PROVENTIL [Concomitant]
     Active Substance: ALBUTEROL
     Dosage: 108 (90 BASE) MCG/ACT, 2 PUFFS EVERY FOUR HOURS AS NEEDED
     Route: 055
  8. CLONAZEPAM. [Concomitant]
     Active Substance: CLONAZEPAM
     Dosage: 4 MILLIGRAM, QD
     Route: 048
  9. ERGOCALCIFEROL. [Concomitant]
     Active Substance: ERGOCALCIFEROL
     Dosage: 1 (UNITS NOT PROVIDED), QW
     Route: 048
  10. ZESTORETIC [Suspect]
     Active Substance: HYDROCHLOROTHIAZIDE\LISINOPRIL
     Indication: BLOOD PRESSURE MEASUREMENT
     Dosage: 10-12.5 MG, HALF TABLET DAILY
     Route: 048

REACTIONS (19)
  - Hypertension [Unknown]
  - Vitamin D deficiency [Unknown]
  - Weight decreased [Unknown]
  - Nicotine dependence [Unknown]
  - Fatigue [Unknown]
  - Diarrhoea [Unknown]
  - Squamous cell carcinoma of skin [Unknown]
  - Post-traumatic stress disorder [Unknown]
  - Scar [Unknown]
  - Anxiety [Unknown]
  - Dupuytren^s contracture [Unknown]
  - Dyspnoea [Unknown]
  - Large intestine polyp [Unknown]
  - Abdominal pain [Unknown]
  - Gastrooesophageal reflux disease [Unknown]
  - Wheezing [Unknown]
  - Nausea [Unknown]
  - Intentional product misuse [Unknown]
  - Haematochezia [Unknown]
